FAERS Safety Report 7048205-8 (Version None)
Quarter: 2010Q4

REPORT INFORMATION
  Report Type: 
  Country: None (occurrence: None)
  Receive Date: 20101015
  Receipt Date: 20101007
  Transmission Date: 20110411
  Serious: Yes (Death, Other)
  Sender: FDA-Public Use
  Company Number: PHHY2010JP66872

PATIENT
  Sex: Male
  Weight: 56 kg

DRUGS (8)
  1. AFINITOR [Suspect]
     Indication: METASTATIC RENAL CELL CARCINOMA
     Dosage: 10 MG
     Route: 048
     Dates: start: 20100428, end: 20100517
  2. SUNITINIB MALATE [Concomitant]
     Indication: METASTATIC RENAL CELL CARCINOMA
     Dosage: 50 MG
     Route: 048
     Dates: start: 20100225, end: 20100427
  3. NEXAVAR [Concomitant]
     Indication: METASTATIC RENAL CELL CARCINOMA
     Dosage: 800 MG
     Route: 048
     Dates: start: 20090116, end: 20100130
  4. MOBIC [Concomitant]
     Indication: METASTATIC RENAL CELL CARCINOMA
     Dosage: 10 MG
     Route: 048
     Dates: start: 20090201
  5. BLOPRESS [Concomitant]
     Indication: METASTATIC RENAL CELL CARCINOMA
     Dosage: 8 MG
     Route: 048
     Dates: start: 20100201
  6. THYRADIN [Concomitant]
     Indication: METASTATIC RENAL CELL CARCINOMA
     Dosage: 50 MG
     Route: 048
     Dates: start: 20100303
  7. RIVOTRIL [Concomitant]
     Indication: METASTATIC RENAL CELL CARCINOMA
     Dosage: 0.5 MG
     Route: 048
     Dates: start: 20100401
  8. DOXAZOSIN MESYLATE [Concomitant]
     Indication: METASTATIC RENAL CELL CARCINOMA
     Dosage: 3 MG
     Route: 048
     Dates: start: 20100401

REACTIONS (3)
  - LIVER DISORDER [None]
  - MALIGNANT NEOPLASM PROGRESSION [None]
  - MALIGNANT PLEURAL EFFUSION [None]
